FAERS Safety Report 16364753 (Version 1)
Quarter: 2019Q2

REPORT INFORMATION
  Report Type: Spontaneous
  Country: US (occurrence: US)
  Receive Date: 20190529
  Receipt Date: 20190529
  Transmission Date: 20190711
  Serious: No
  Sender: FDA-Public Use
  Company Number: US-ASTRAZENECA-2019SE69080

PATIENT
  Sex: Female
  Weight: 44.5 kg

DRUGS (1)
  1. SYMBICORT [Suspect]
     Active Substance: BUDESONIDE\FORMOTEROL FUMARATE DIHYDRATE
     Indication: ASTHMA
     Dosage: 80/4.5 MCG TWO PUFFS TWICE A DAY
     Route: 055
     Dates: start: 201812

REACTIONS (5)
  - Extra dose administered [Unknown]
  - Nervousness [Unknown]
  - Chest discomfort [Recovered/Resolved]
  - Lung disorder [Unknown]
  - Angiopathy [Unknown]
